FAERS Safety Report 7256242-3 (Version None)
Quarter: 2011Q1

REPORT INFORMATION
  Report Type: 
  Country: None (occurrence: None)
  Receive Date: 20110129
  Receipt Date: 20100702
  Transmission Date: 20110831
  Serious: No
  Sender: FDA-Public Use
  Company Number: US-ABBOTT-10P-163-0630450-00

PATIENT
  Sex: Female
  Weight: 68.554 kg

DRUGS (8)
  1. HUMIRA [Suspect]
     Indication: CROHN'S DISEASE
     Dosage: DAY 15
     Dates: start: 20100212, end: 20100521
  2. SULFADINE [Concomitant]
     Indication: COLITIS ULCERATIVE
  3. IRON SOFT GEL [Concomitant]
     Indication: CROHN'S DISEASE
  4. IRON SOFT GEL [Concomitant]
     Indication: COLITIS ULCERATIVE
  5. HUMIRA [Suspect]
  6. CELEBREX [Concomitant]
     Indication: PRODUCT USED FOR UNKNOWN INDICATION
  7. SULFASALAZINE [Concomitant]
     Indication: PRODUCT USED FOR UNKNOWN INDICATION
     Dates: start: 20080101
  8. SULFADINE [Concomitant]
     Indication: CROHN'S DISEASE
     Dosage: TWO TABLETS 3-4 TIMES A DAY

REACTIONS (6)
  - ABDOMINAL DISTENSION [None]
  - ABNORMAL FAECES [None]
  - ANORECTAL INFECTION [None]
  - DYSPNOEA EXERTIONAL [None]
  - SENSORY DISTURBANCE [None]
  - PARAESTHESIA [None]
